FAERS Safety Report 19867728 (Version 6)
Quarter: 2023Q1

REPORT INFORMATION
  Report Type: Report from Study
  Country: US (occurrence: US)
  Receive Date: 20210921
  Receipt Date: 20230318
  Transmission Date: 20230418
  Serious: No
  Sender: FDA-Public Use
  Company Number: US-NOVARTISTESTPH-NVSC2021US212221

PATIENT
  Age: 8 Year
  Sex: Female

DRUGS (3)
  1. ILARIS [Suspect]
     Active Substance: CANAKINUMAB
     Indication: Familial amyloidosis
     Dosage: 150 MG, OTHER EVERY 4 WEEKS
     Route: 058
     Dates: start: 2018
  2. ILARIS [Suspect]
     Active Substance: CANAKINUMAB
     Dosage: 150 MG, OTHER EVERY 4 WEEKS
     Route: 058
     Dates: start: 20191017
  3. ILARIS [Suspect]
     Active Substance: CANAKINUMAB
     Dosage: 150 MG, Q4W
     Route: 058
     Dates: start: 20200211

REACTIONS (6)
  - Malaise [Recovered/Resolved]
  - Pyrexia [Unknown]
  - Ear pain [Recovered/Resolved]
  - Influenza [Unknown]
  - Pharyngitis [Unknown]
  - Product use in unapproved indication [Unknown]

NARRATIVE: CASE EVENT DATE: 20210201
